FAERS Safety Report 6718153-9 (Version None)
Quarter: 2010Q2

REPORT INFORMATION
  Report Type: 
  Country: None (occurrence: None)
  Receive Date: 20100510
  Receipt Date: 20100430
  Transmission Date: 20101027
  Serious: Yes (Hospitalization, Other)
  Sender: FDA-Public Use
  Company Number: US-PFIZER INC-2010055722

PATIENT
  Sex: Female
  Weight: 77 kg

DRUGS (9)
  1. LYRICA [Suspect]
     Indication: FIBROMYALGIA
     Dosage: 75 MG, 1X/DAY
  2. KLONOPIN [Concomitant]
     Indication: ANXIETY
     Dosage: 1 MG, 2X/DAY
  3. DEPAKOTE [Concomitant]
     Indication: INSOMNIA
     Dosage: 500 MG, 1X/DAY
  4. ZANAFLEX [Concomitant]
     Indication: MUSCULOSKELETAL STIFFNESS
     Dosage: 4 MG, 3X/DAY
  5. INDERAL [Concomitant]
     Indication: ANGINA PECTORIS
     Dosage: 20 MG, 3X/DAY
  6. SEROQUEL [Concomitant]
     Indication: BIPOLAR DISORDER
     Dosage: 600 MG, 1X/DAY
  7. CALCIUM WITH VITAMIN D [Concomitant]
     Indication: OSTEOPOROSIS
     Dosage: 500 MG, UNK
  8. DICLOFENAC SODIUM [Concomitant]
     Indication: INFLAMMATION
     Dosage: 75 MG, 2X/DAY
  9. DICLOFENAC SODIUM [Concomitant]
     Indication: OSTEOPOROSIS

REACTIONS (14)
  - ANGINA PECTORIS [None]
  - BONE PAIN [None]
  - CARPAL TUNNEL SYNDROME [None]
  - DEPRESSION [None]
  - DRUG INEFFECTIVE [None]
  - FALL [None]
  - HEADACHE [None]
  - INSOMNIA [None]
  - MYALGIA [None]
  - NECK PAIN [None]
  - OSTEOPOROSIS [None]
  - PAIN [None]
  - SPINAL COLUMN STENOSIS [None]
  - SPONDYLITIS [None]
